FAERS Safety Report 7511741-1 (Version None)
Quarter: 2011Q2

REPORT INFORMATION
  Report Type: 
  Country: None (occurrence: None)
  Receive Date: 20110531
  Receipt Date: 20110517
  Transmission Date: 20111010
  Serious: Yes (Hospitalization, Other)
  Sender: FDA-Public Use
  Company Number: CA-ELI_LILLY_AND_COMPANY-CA201105005224

PATIENT
  Age: 59 Year
  Sex: Female

DRUGS (33)
  1. FORTEO [Suspect]
     Indication: OSTEOPOROSIS
     Dosage: 20 UG, QD
     Route: 058
     Dates: start: 20110406
  2. ASPIRIN [Concomitant]
  3. NITRO                              /00003201/ [Concomitant]
  4. SERC                               /00034201/ [Concomitant]
  5. AMITRIPTYLINE HCL [Concomitant]
  6. PANTOLOC                           /01263202/ [Concomitant]
  7. ATARAX [Concomitant]
  8. IMOVANE [Concomitant]
  9. FERROUS GLUCONATE [Concomitant]
  10. VITAMIN D [Concomitant]
  11. DICETEL [Concomitant]
  12. LYRICA [Concomitant]
  13. RAMIPRIL [Concomitant]
  14. POTASSIUM CHLORIDE [Concomitant]
  15. FLOVENT [Concomitant]
  16. SYNTHROID [Concomitant]
  17. DICLOFENAC SODIUM [Concomitant]
  18. BECLOMETHASONE [Concomitant]
  19. CRESTOR [Concomitant]
  20. LUMIGAN [Concomitant]
     Route: 047
  21. WARFARIN SODIUM [Concomitant]
  22. IMURAN [Concomitant]
  23. DILTIAZEM [Concomitant]
  24. BACLOFEN [Concomitant]
  25. PERCOCET [Concomitant]
  26. NOVO-HYDRAZIDE [Concomitant]
  27. DOMPERIDONE [Concomitant]
  28. CALCIUM CARBONATE [Concomitant]
  29. PAXIL [Concomitant]
  30. ZINC [Concomitant]
  31. COMBIGAN [Concomitant]
  32. VENTOLIN [Concomitant]
  33. LACTULOSE [Concomitant]

REACTIONS (3)
  - PNEUMONIA [None]
  - THROMBOSIS [None]
  - LOSS OF CONSCIOUSNESS [None]
